FAERS Safety Report 25264525 (Version 2)
Quarter: 2025Q2

REPORT INFORMATION
  Report Type: Spontaneous
  Country: US (occurrence: US)
  Receive Date: 20250502
  Receipt Date: 20250527
  Transmission Date: 20250717
  Serious: Yes (Other)
  Sender: BAYER HEALTHCARE PHARMACEUTICALS INC.
  Company Number: US-BAYER-2025A056327

PATIENT
  Age: 61 Year
  Sex: Male

DRUGS (2)
  1. JIVI [Suspect]
     Active Substance: DAMOCTOCOG ALFA PEGOL
     Indication: Intermenstrual bleeding
  2. JIVI [Suspect]
     Active Substance: DAMOCTOCOG ALFA PEGOL
     Indication: Intermenstrual bleeding
     Dosage: STRENGTH 3144;INFUSE 3200 UNITS (+/-10%) TWICE WEEKLY FOR PROPHYLAXIS AND AS

REACTIONS (3)
  - Dental implantation [None]
  - Joint swelling [None]
  - Extra dose administered [None]

NARRATIVE: CASE EVENT DATE: 20250422
